FAERS Safety Report 15543147 (Version 2)
Quarter: 2018Q4

REPORT INFORMATION
  Report Type: Spontaneous
  Country: FR (occurrence: FR)
  Receive Date: 20181023
  Receipt Date: 20181106
  Transmission Date: 20190205
  Serious: Yes (Congenital Anomaly)
  Sender: FDA-Public Use
  Company Number: FR-PFIZER INC-2018425063

PATIENT
  Sex: Female
  Weight: 2.77 kg

DRUGS (9)
  1. COAPROVEL [Suspect]
     Active Substance: HYDROCHLOROTHIAZIDE\IRBESARTAN
     Indication: HYPERTENSION
     Dosage: 1 DF, DAILY
     Route: 064
     Dates: start: 20160914, end: 20170214
  2. METFORMIN HCL [Suspect]
     Active Substance: METFORMIN HYDROCHLORIDE
     Indication: TYPE 2 DIABETES MELLITUS
     Dosage: 2000 MG, DAILY
     Route: 064
     Dates: start: 20160914, end: 20170214
  3. LOXEN (NICARDIPINE HYDROCHLORIDE) [Suspect]
     Active Substance: NICARDIPINE HYDROCHLORIDE
     Dosage: 1 DF, DAILY
     Route: 064
     Dates: start: 20170215, end: 20170531
  4. TRANDATE [Suspect]
     Active Substance: LABETALOL HYDROCHLORIDE
     Dosage: 400 MG, DAILY
     Route: 064
     Dates: start: 20170215, end: 20170531
  5. AMLODIPINE [Suspect]
     Active Substance: AMLODIPINE BESYLATE
     Indication: HYPERTENSION
     Dosage: 10 MG, DAILY
     Route: 064
     Dates: start: 20160914, end: 20170214
  6. FLUORESCEIN SODIUM. [Suspect]
     Active Substance: FLUORESCEIN SODIUM
     Indication: ANGIOGRAM
     Dosage: 1 DF SINGLE
     Route: 064
     Dates: start: 201609, end: 201609
  7. INDOCYANINE GREEN. [Suspect]
     Active Substance: INDOCYANINE GREEN
     Indication: ANGIOGRAM
     Dosage: 1 DF, SINGLE
     Route: 064
     Dates: start: 201609, end: 201609
  8. AERIUS (DESLORATADINE) [Suspect]
     Active Substance: DESLORATADINE
     Indication: HYPERSENSITIVITY
     Dosage: 5 MG, 1X/DAY
     Route: 064
     Dates: start: 20160914, end: 20170531
  9. INSULIN [Concomitant]
     Active Substance: INSULIN NOS

REACTIONS (4)
  - Maternal exposure during pregnancy [Not Recovered/Not Resolved]
  - Haemangioma congenital [Not Recovered/Not Resolved]
  - Low birth weight baby [Unknown]
  - Patent ductus arteriosus [Recovered/Resolved]

NARRATIVE: CASE EVENT DATE: 20170531
